FAERS Safety Report 9573714 (Version 1)
Quarter: 2013Q4

REPORT INFORMATION
  Report Type: Spontaneous
  Country: FR (occurrence: FR)
  Receive Date: 20131001
  Receipt Date: 20131001
  Transmission Date: 20140711
  Serious: Yes (Other)
  Sender: FDA-Public Use
  Company Number: FR-PFIZER INC-2013274661

PATIENT
  Age: 61 Year
  Sex: Male

DRUGS (12)
  1. TAHOR [Suspect]
     Indication: INFARCTION
     Dosage: 40 MG, 1X/DAY
     Route: 048
     Dates: start: 20130829, end: 20130903
  2. ALDACTONE [Suspect]
     Indication: INFARCTION
     Dosage: 12.5 MG, 1X/DAY
     Route: 048
     Dates: start: 20130902, end: 20130903
  3. INEXIUM [Suspect]
     Indication: ABDOMINAL PAIN UPPER
     Dosage: 40 MG, 1X/DAY
     Route: 048
     Dates: start: 20130829, end: 20130903
  4. LOVENOX [Suspect]
     Indication: MYOCARDIAL INFARCTION
     Dosage: 4000 IU, 1X/DAY
     Route: 058
     Dates: start: 20130828, end: 20130903
  5. LEXOMIL [Suspect]
     Dosage: 1.5 MG, AS NEEDED
     Route: 048
     Dates: start: 20130829, end: 20130903
  6. DOLIPRANE [Suspect]
     Indication: PAIN
     Dosage: UNK
     Route: 048
     Dates: start: 20130831, end: 20130901
  7. KARDEGIC [Concomitant]
  8. PARACETAMOL MACO PHARMA [Concomitant]
     Dosage: UNK
     Dates: end: 20130831
  9. BISOCE [Concomitant]
  10. BRILIQUE [Concomitant]
  11. OGAST [Concomitant]
     Indication: ABDOMINAL PAIN UPPER
  12. TRIATEC [Concomitant]

REACTIONS (4)
  - Alanine aminotransferase increased [Recovering/Resolving]
  - Aspartate aminotransferase increased [Recovering/Resolving]
  - Blood alkaline phosphatase increased [Recovering/Resolving]
  - Gamma-glutamyltransferase increased [Recovering/Resolving]
